FAERS Safety Report 17393673 (Version 1)
Quarter: 2020Q1

REPORT INFORMATION
  Report Type: Report from Study
  Country: DE (occurrence: DE)
  Receive Date: 20200209
  Receipt Date: 20200209
  Transmission Date: 20200409
  Serious: Yes (Hospitalization)
  Sender: FDA-Public Use
  Company Number: NVSC2019DE081573

PATIENT
  Age: 58 Year
  Sex: Male
  Weight: 84 kg

DRUGS (20)
  1. BLINDED ACZ885 [Suspect]
     Active Substance: CANAKINUMAB
     Dosage: 200 DF, Q3W
     Route: 058
     Dates: start: 20200117
  2. MAGNESIUM [Concomitant]
     Active Substance: MAGNESIUM
     Dosage: UNK
     Route: 065
     Dates: start: 20191227
  3. DOLORMIN [Concomitant]
     Active Substance: IBUPROFEN
     Indication: HEADACHE
     Dosage: UNK
     Route: 065
     Dates: start: 20090101
  4. DOLORMIN [Concomitant]
     Active Substance: IBUPROFEN
     Indication: NEUROPATHY PERIPHERAL
  5. BLINDED ACZ885 [Suspect]
     Active Substance: CANAKINUMAB
     Indication: NON-SMALL CELL LUNG CANCER
     Dosage: 200 DF, Q3W
     Route: 058
     Dates: start: 20190826, end: 20191206
  6. BLINDED ACZ885 [Suspect]
     Active Substance: CANAKINUMAB
     Indication: NON-SMALL CELL LUNG CANCER
     Dosage: 200 DF, Q3W
     Route: 058
     Dates: start: 20190826, end: 20191206
  7. CARBAMAZEPINE. [Concomitant]
     Active Substance: CARBAMAZEPINE
     Indication: NEUROPATHY PERIPHERAL
     Dosage: UNK
     Route: 065
     Dates: start: 20191103, end: 20200102
  8. BLINDED PLACEBO [Suspect]
     Active Substance: INVESTIGATIONAL PRODUCT
     Indication: NON-SMALL CELL LUNG CANCER
     Dosage: 200 DF, Q3W
     Route: 058
     Dates: start: 20190826, end: 20191206
  9. BLINDED NO TREATMENT RECEIVED [Suspect]
     Active Substance: INVESTIGATIONAL PRODUCT
     Dosage: 200 DF, Q3W
     Route: 058
     Dates: start: 20200117
  10. GABAPENTIN. [Concomitant]
     Active Substance: GABAPENTIN
     Indication: NEUROPATHY PERIPHERAL
     Dosage: UNK
     Route: 065
     Dates: start: 20191103, end: 20200102
  11. CIPROFLOXACIN. [Concomitant]
     Active Substance: CIPROFLOXACIN
     Indication: PNEUMONIA
     Dosage: UNK
     Route: 065
     Dates: start: 20191224, end: 20191226
  12. ZOPICLON [Concomitant]
     Active Substance: ZOPICLONE
     Indication: SLEEP DISORDER
     Dosage: UNK
     Route: 065
     Dates: start: 20191230, end: 20191231
  13. BLINDED NO TREATMENT RECEIVED [Suspect]
     Active Substance: INVESTIGATIONAL PRODUCT
     Indication: NON-SMALL CELL LUNG CANCER
     Dosage: 200 DF, Q3W
     Route: 058
     Dates: start: 20190826, end: 20191206
  14. BLINDED ACZ885 [Suspect]
     Active Substance: CANAKINUMAB
     Dosage: 200 DF, Q3W
     Route: 058
     Dates: start: 20200117
  15. VITAMIN B COMPLEX NOS [Concomitant]
     Active Substance: CYANOCOBALAMIN\PYRIDOXINE HYDROCHLORIDE\RIBOFLAVIN\SODIUM PANTOTHENATE\THIAMINE HYDROCHLORIDE\VITAMIN B COMPLEX
     Dosage: UNK
     Route: 065
     Dates: start: 20191227
  16. RINGERS SOLUTION [Concomitant]
     Active Substance: CALCIUM CHLORIDE\POTASSIUM CHLORIDE\SODIUM CHLORIDE
     Indication: BLOOD CREATININE INCREASED
     Dosage: UNK
     Route: 065
     Dates: start: 20191227, end: 20200102
  17. BLINDED PLACEBO [Suspect]
     Active Substance: INVESTIGATIONAL PRODUCT
     Dosage: 200 DF, Q3W
     Route: 058
     Dates: start: 20200117
  18. MAGNESIUM [Concomitant]
     Active Substance: MAGNESIUM
     Indication: NEUROPATHY PERIPHERAL
     Dosage: UNK
     Route: 065
     Dates: start: 20190906
  19. PREGABALIN. [Concomitant]
     Active Substance: PREGABALIN
     Indication: NEUROPATHY PERIPHERAL
     Dosage: UNK
     Route: 065
     Dates: start: 20191103
  20. VITAMIN B COMPLEX NOS [Concomitant]
     Active Substance: CYANOCOBALAMIN\PYRIDOXINE HYDROCHLORIDE\RIBOFLAVIN\SODIUM PANTOTHENATE\THIAMINE HYDROCHLORIDE\VITAMIN B COMPLEX
     Indication: NEUROPATHY PERIPHERAL
     Dosage: UNK
     Route: 065
     Dates: start: 20190924

REACTIONS (1)
  - Pneumonia [Recovered/Resolved]

NARRATIVE: CASE EVENT DATE: 20191227
